FAERS Safety Report 17393044 (Version 3)
Quarter: 2020Q2

REPORT INFORMATION
  Report Type: Report from Study
  Country: None (occurrence: FR)
  Receive Date: 20200208
  Receipt Date: 20200525
  Transmission Date: 20200713
  Serious: Yes (Hospitalization, Other)
  Sender: FDA-Public Use
  Company Number: FR-ABBVIE-20K-056-3265258-00

PATIENT
  Age: 76 Year
  Sex: Male

DRUGS (2)
  1. DUODOPA [Suspect]
     Active Substance: CARBIDOPA\LEVODOPA
     Indication: PARKINSON^S DISEASE
     Route: 050
     Dates: start: 20141127, end: 2020
  2. APOMORPHINE [Concomitant]
     Active Substance: APOMORPHINE
     Indication: PRODUCT USED FOR UNKNOWN INDICATION
     Dates: start: 20200519

REACTIONS (3)
  - Abdominal pain [Unknown]
  - Skin necrosis [Unknown]
  - Abdominal wall abscess [Unknown]

NARRATIVE: CASE EVENT DATE: 202001
